FAERS Safety Report 9065300 (Version 1)
Quarter: 2013Q1

REPORT INFORMATION
  Report Type: Spontaneous
  Country: CA (occurrence: CA)
  Receive Date: 20130214
  Receipt Date: 20130214
  Transmission Date: 20140127
  Serious: Yes (Hospitalization, Other)
  Sender: FDA-Public Use
  Company Number: CA-TEVA-386076USA

PATIENT
  Age: 86 Year
  Sex: Male

DRUGS (1)
  1. CLINDAMYCIN [Suspect]
     Dosage: 1200 MILLIGRAM DAILY;
     Route: 048

REACTIONS (2)
  - Angina pectoris [Recovered/Resolved]
  - Chest pain [Recovered/Resolved]
